FAERS Safety Report 9908987 (Version 2)
Quarter: 2014Q1

REPORT INFORMATION
  Report Type: Spontaneous
  Country: US (occurrence: US)
  Receive Date: 20140219
  Receipt Date: 20140219
  Transmission Date: 20141002
  Serious: Yes (Other)
  Sender: FDA-Public Use
  Company Number: US-GE HEALTHCARE MEDICAL DIAGNOSTICS-OSCN-PR-1001S-0002

PATIENT
  Age: 44 Year
  Sex: Female

DRUGS (62)
  1. OMNISCAN [Suspect]
     Indication: HEADACHE
     Route: 042
     Dates: start: 20060116, end: 20060116
  2. OMNISCAN [Suspect]
     Indication: PERIORBITAL OEDEMA
  3. OMNISCAN [Suspect]
     Indication: PAPILLOEDEMA
  4. GADOLINIUM (UNSPECIFIED) [Suspect]
     Indication: PRODUCT USED FOR UNKNOWN INDICATION
     Route: 042
     Dates: start: 20041220, end: 20041220
  5. GADOLINIUM (UNSPECIFIED) [Suspect]
     Route: 042
     Dates: start: 20050218, end: 20050218
  6. GADOLINIUM (UNSPECIFIED) [Suspect]
     Route: 042
     Dates: start: 20050530, end: 20050530
  7. GADOLINIUM (UNSPECIFIED) [Suspect]
     Route: 042
     Dates: start: 20050608, end: 20050608
  8. GADOLINIUM (UNSPECIFIED) [Suspect]
     Route: 042
     Dates: start: 20060216, end: 20060216
  9. GADOLINIUM (UNSPECIFIED) [Suspect]
     Route: 042
     Dates: start: 20060217, end: 20060217
  10. GADOLINIUM (UNSPECIFIED) [Suspect]
     Route: 042
     Dates: start: 20060330, end: 20060330
  11. GADOLINIUM (UNSPECIFIED) [Suspect]
     Route: 042
     Dates: start: 20060521, end: 20060521
  12. GADOLINIUM (UNSPECIFIED) [Suspect]
     Route: 042
     Dates: start: 20060712, end: 20060712
  13. GADOLINIUM (UNSPECIFIED) [Suspect]
     Route: 042
     Dates: start: 20061228, end: 20061228
  14. GADOLINIUM (UNSPECIFIED) [Suspect]
     Route: 042
     Dates: start: 20061229, end: 20061229
  15. GADOLINIUM (UNSPECIFIED) [Suspect]
     Route: 042
     Dates: start: 20070102, end: 20070102
  16. GADOLINIUM (UNSPECIFIED) [Suspect]
     Route: 042
     Dates: start: 20071004, end: 20071004
  17. GADOLINIUM (UNSPECIFIED) [Suspect]
     Route: 042
     Dates: start: 20071025, end: 20071025
  18. GADOLINIUM (UNSPECIFIED) [Suspect]
     Route: 042
     Dates: start: 20071219, end: 20071219
  19. GADOLINIUM (UNSPECIFIED) [Suspect]
     Route: 042
     Dates: start: 20080427, end: 20080427
  20. GADOLINIUM (UNSPECIFIED) [Suspect]
     Route: 042
     Dates: start: 20080516, end: 20080516
  21. GADOLINIUM (UNSPECIFIED) [Suspect]
     Route: 042
     Dates: start: 20080531, end: 20080531
  22. GADOLINIUM (UNSPECIFIED) [Suspect]
     Route: 042
     Dates: start: 20080710, end: 20080710
  23. GADOLINIUM (UNSPECIFIED) [Suspect]
     Route: 042
     Dates: start: 20080815, end: 20080815
  24. GADOLINIUM (UNSPECIFIED) [Suspect]
     Route: 042
     Dates: start: 20081017, end: 20081017
  25. GADOLINIUM (UNSPECIFIED) [Suspect]
     Route: 042
     Dates: start: 20081121, end: 20081121
  26. GADOLINIUM (UNSPECIFIED) [Suspect]
     Route: 042
     Dates: start: 20090520, end: 20090520
  27. GADOLINIUM (UNSPECIFIED) [Suspect]
     Route: 042
     Dates: start: 20090522, end: 20090522
  28. GADOLINIUM (UNSPECIFIED) [Suspect]
     Route: 042
     Dates: start: 20050629, end: 20050629
  29. GADOLINIUM (UNSPECIFIED) [Suspect]
     Route: 042
     Dates: start: 20061020, end: 20061020
  30. GADOLINIUM (UNSPECIFIED) [Suspect]
     Route: 042
     Dates: start: 20070114, end: 20070114
  31. GADOLINIUM (UNSPECIFIED) [Suspect]
     Route: 042
     Dates: start: 20080530, end: 20080530
  32. GADOLINIUM (UNSPECIFIED) [Suspect]
     Route: 042
     Dates: start: 20080601, end: 20080601
  33. MAGNEVIST [Suspect]
     Indication: PRODUCT USED FOR UNKNOWN INDICATION
     Route: 042
     Dates: start: 20020826, end: 20020826
  34. MAGNEVIST [Suspect]
     Indication: OEDEMA PERIPHERAL
     Route: 042
     Dates: start: 20060802, end: 20060802
  35. MAGNEVIST [Suspect]
     Indication: LIMB DEFORMITY
     Route: 042
     Dates: start: 20060809, end: 20060809
  36. MAGNEVIST [Suspect]
     Indication: PAIN
     Route: 042
     Dates: start: 20061020, end: 20061020
  37. MAGNEVIST [Suspect]
     Indication: ROAD TRAFFIC ACCIDENT
     Route: 042
     Dates: start: 20061230, end: 20061230
  38. MAGNEVIST [Suspect]
     Indication: HEADACHE
     Route: 042
     Dates: start: 20070114, end: 20070114
  39. MAGNEVIST [Suspect]
     Indication: VISUAL IMPAIRMENT
     Route: 042
     Dates: start: 20071113, end: 20071113
  40. MAGNEVIST [Suspect]
     Indication: BENIGN INTRACRANIAL HYPERTENSION
     Route: 042
     Dates: start: 20080601, end: 20080601
  41. MAGNEVIST [Suspect]
     Indication: MENTAL STATUS CHANGES
     Route: 042
     Dates: start: 20071013, end: 20071013
  42. MAGNEVIST [Suspect]
     Indication: CONFUSIONAL STATE
  43. MAGNEVIST [Suspect]
     Indication: DIZZINESS
  44. MAGNEVIST [Suspect]
     Indication: EYE SWELLING
  45. MAGNEVIST [Suspect]
     Indication: PAIN IN EXTREMITY
  46. PROHANCE [Suspect]
     Indication: BENIGN INTRACRANIAL HYPERTENSION
     Route: 042
     Dates: start: 20040506, end: 20040506
  47. PROHANCE [Suspect]
     Route: 042
     Dates: start: 20060116, end: 20060116
  48. OPTIMARK [Suspect]
     Indication: PRODUCT USED FOR UNKNOWN INDICATION
     Route: 042
     Dates: start: 20060506, end: 20060506
  49. CRESTOR [Concomitant]
     Indication: PRODUCT USED FOR UNKNOWN INDICATION
  50. LIPITOR [Concomitant]
     Indication: PRODUCT USED FOR UNKNOWN INDICATION
  51. PROVENTIL [Concomitant]
     Indication: PRODUCT USED FOR UNKNOWN INDICATION
  52. COMBIVENT [Concomitant]
     Indication: PRODUCT USED FOR UNKNOWN INDICATION
  53. FLOVENT [Concomitant]
     Indication: PRODUCT USED FOR UNKNOWN INDICATION
  54. SYNTHROID [Concomitant]
     Indication: PRODUCT USED FOR UNKNOWN INDICATION
  55. HYZAAR [Concomitant]
     Indication: PRODUCT USED FOR UNKNOWN INDICATION
  56. METFORMIN [Concomitant]
     Indication: PRODUCT USED FOR UNKNOWN INDICATION
  57. SINGULAIR [Concomitant]
     Indication: PRODUCT USED FOR UNKNOWN INDICATION
  58. ATENOLOL [Concomitant]
     Indication: PRODUCT USED FOR UNKNOWN INDICATION
  59. NEURONTIN [Concomitant]
     Indication: PRODUCT USED FOR UNKNOWN INDICATION
  60. PREDNISONE [Concomitant]
     Indication: PRODUCT USED FOR UNKNOWN INDICATION
  61. FRAGMIN [Concomitant]
     Indication: PRODUCT USED FOR UNKNOWN INDICATION
  62. LOVENOX [Concomitant]
     Indication: PRODUCT USED FOR UNKNOWN INDICATION

REACTIONS (1)
  - Nephrogenic systemic fibrosis [Not Recovered/Not Resolved]
